FAERS Safety Report 10265259 (Version 3)
Quarter: 2014Q3

REPORT INFORMATION
  Report Type: Report from Study
  Country: CZ (occurrence: CZ)
  Receive Date: 20140627
  Receipt Date: 20140826
  Transmission Date: 20150326
  Serious: Yes (Hospitalization)
  Sender: FDA-Public Use
  Company Number: CZ-ASTELLAS-2014EU008569

PATIENT
  Age: 67 Year
  Sex: Female
  Weight: 63 kg

DRUGS (5)
  1. FRAXIPARIN                         /00889603/ [Concomitant]
     Indication: ANTICOAGULANT THERAPY
     Dosage: 0.6 ML, ONCE DAILY
     Route: 048
     Dates: start: 20140612, end: 20140616
  2. DIPIDOLOR [Concomitant]
     Active Substance: PIRITRAMIDE
     Indication: ANALGESIC THERAPY
     Route: 048
     Dates: start: 20140612, end: 20140614
  3. KORYLAN                            /01037001/ [Concomitant]
     Indication: ANALGESIC THERAPY
     Dosage: UNK UNK, TWICE DAILY
     Route: 048
     Dates: start: 20140612, end: 20140616
  4. SOLIFENACIN [Suspect]
     Active Substance: SOLIFENACIN
     Indication: HYPERTONIC BLADDER
     Route: 048
     Dates: start: 20140314, end: 20140411
  5. SOLIFENACIN [Suspect]
     Active Substance: SOLIFENACIN
     Indication: HYPERTONIC BLADDER
     Dosage: UNK, ONCE DAILY
     Route: 048
     Dates: start: 20140412, end: 20140704

REACTIONS (1)
  - Thrombosis [Recovered/Resolved]

NARRATIVE: CASE EVENT DATE: 20140612
